FAERS Safety Report 11554771 (Version 1)
Quarter: 2015Q3

REPORT INFORMATION
  Report Type: Spontaneous
  Country: US (occurrence: US)
  Receive Date: 20150903
  Receipt Date: 20150903
  Transmission Date: 20151125
  Serious: No
  Sender: FDA-Public Use
  Company Number: US-ELI_LILLY_AND_COMPANY-US201009000856

PATIENT
  Sex: Female

DRUGS (1)
  1. HUMALOG [Suspect]
     Active Substance: INSULIN LISPRO
     Indication: DIABETES MELLITUS
     Dosage: 16 U, 3/D
     Dates: start: 20100901

REACTIONS (2)
  - Blood glucose increased [Unknown]
  - Malabsorption from injection site [Unknown]

NARRATIVE: CASE EVENT DATE: 20100901
